FAERS Safety Report 5275431-0 (Version None)
Quarter: 2007Q1

REPORT INFORMATION
  Report Type: 
  Country: None (occurrence: None)
  Receive Date: 20070326
  Receipt Date: 20070326
  Transmission Date: 20070707
  Serious: Yes (Hospitalization)
  Sender: FDA-Public Use
  Company Number: None

PATIENT
  Age: 12 Year
  Sex: Female
  Weight: 29 kg

DRUGS (5)
  1. NIFURTIMOX 120MG TABS [Suspect]
     Indication: NEUROBLASTOMA RECURRENT
     Dosage: 20MG/KG/DAY PO DIV TID
     Route: 048
     Dates: start: 20070228
  2. OXYCODONE HCL [Concomitant]
  3. LORAZEPAM [Concomitant]
  4. CALCIUM SUPPLEMNENTS [Concomitant]
  5. ZOLENDRENIC ACID [Concomitant]

REACTIONS (8)
  - CONVULSION [None]
  - FEELING JITTERY [None]
  - GAZE PALSY [None]
  - LETHARGY [None]
  - LOSS OF CONSCIOUSNESS [None]
  - MUSCLE RIGIDITY [None]
  - STARING [None]
  - SYNCOPE [None]
